FAERS Safety Report 9379273 (Version 2)
Quarter: 2013Q3

REPORT INFORMATION
  Report Type: Spontaneous
  Country: JP (occurrence: JP)
  Receive Date: 20130702
  Receipt Date: 20130712
  Transmission Date: 20140515
  Serious: Yes (Other)
  Sender: FDA-Public Use
  Company Number: JP-RANBAXY-2013RR-70746

PATIENT
  Age: 59 Year
  Sex: Male

DRUGS (4)
  1. RISPERIDONE [Suspect]
     Indication: HALLUCINATION, AUDITORY
     Dosage: 6 MG/DAY
     Route: 065
  2. RISPERIDONE [Suspect]
     Indication: DELUSION
  3. OLANZAPINE [Suspect]
     Indication: HALLUCINATION, AUDITORY
     Dosage: 20 MG/DAY
     Route: 065
  4. OLANZAPINE [Suspect]
     Indication: DELUSION

REACTIONS (2)
  - Extrapyramidal disorder [Unknown]
  - Drug ineffective [Unknown]
